FAERS Safety Report 5131895-4 (Version None)
Quarter: 2006Q4

REPORT INFORMATION
  Report Type: 
  Country: None (occurrence: None)
  Receive Date: 20061016
  Receipt Date: 20060928
  Transmission Date: 20070319
  Serious: Yes (Hospitalization)
  Sender: FDA-Public Use
  Company Number: 2006122797

PATIENT
  Sex: Female

DRUGS (3)
  1. CELEBREX [Suspect]
     Dosage: ORAL
     Route: 048
     Dates: start: 19990101, end: 20020401
  2. BEXTRA [Suspect]
     Dosage: ORAL
     Route: 048
     Dates: start: 20010101, end: 20020401
  3. VIOXX [Suspect]
     Dosage: ORAL
     Route: 048
     Dates: start: 20020401

REACTIONS (1)
  - CEREBROVASCULAR ACCIDENT [None]
